FAERS Safety Report 10181865 (Version 2)
Quarter: 2014Q2

REPORT INFORMATION
  Report Type: Report from Study
  Country: US (occurrence: US)
  Receive Date: 20140519
  Receipt Date: 20140519
  Transmission Date: 20141212
  Serious: Yes (Hospitalization, Other)
  Sender: FDA-Public Use
  Company Number: US-ABBVIE-14K-163-1226568-00

PATIENT
  Age: 57 Year
  Sex: Female

DRUGS (28)
  1. HUMIRA [Suspect]
     Indication: CROHN^S DISEASE
     Dates: start: 20140326, end: 20140326
  2. HUMIRA [Suspect]
     Dates: start: 20140409, end: 20140409
  3. HUMIRA [Suspect]
     Dates: end: 20140423
  4. VITAMIN D NOS [Concomitant]
     Indication: PRODUCT USED FOR UNKNOWN INDICATION
  5. IRON [Concomitant]
     Indication: PRODUCT USED FOR UNKNOWN INDICATION
  6. VITAMIN C [Concomitant]
     Indication: PRODUCT USED FOR UNKNOWN INDICATION
  7. VITAMIN B NOS [Concomitant]
     Indication: MALABSORPTION
     Route: 050
  8. VITAMIN B NOS [Concomitant]
     Indication: CROHN^S DISEASE
  9. ALBUTEROL [Concomitant]
     Indication: PRODUCT USED FOR UNKNOWN INDICATION
  10. PROAIR [Concomitant]
     Indication: PRODUCT USED FOR UNKNOWN INDICATION
  11. DULERA [Concomitant]
     Indication: PRODUCT USED FOR UNKNOWN INDICATION
  12. SINGULAR [Concomitant]
     Indication: CHRONIC OBSTRUCTIVE PULMONARY DISEASE
  13. AZATHIOPRINE [Concomitant]
     Indication: PRODUCT USED FOR UNKNOWN INDICATION
  14. LIALDA [Concomitant]
     Indication: PRODUCT USED FOR UNKNOWN INDICATION
  15. BUDESONIDE [Concomitant]
     Indication: CROHN^S DISEASE
  16. ONDANSETRON [Concomitant]
     Indication: NAUSEA
  17. DIPHENOXYLATE [Concomitant]
     Indication: DIARRHOEA
     Dosage: ONE TO TWO EVERY SIX HOURS
  18. VENLAFAXINE [Concomitant]
     Indication: DEPRESSION
  19. OMEPRAZOLE [Concomitant]
     Indication: GASTROOESOPHAGEAL REFLUX DISEASE
  20. ASA [Concomitant]
     Indication: PROPHYLAXIS
  21. DOXYCYCLINE [Concomitant]
     Indication: PRODUCT USED FOR UNKNOWN INDICATION
  22. HCTZ [Concomitant]
     Indication: PRODUCT USED FOR UNKNOWN INDICATION
     Dates: end: 20140424
  23. GABAPENTIN [Concomitant]
     Indication: PRODUCT USED FOR UNKNOWN INDICATION
  24. OXYCODONE [Concomitant]
     Indication: BACK PAIN
     Dates: end: 20140424
  25. OXYCODONE [Concomitant]
     Indication: PAIN IN EXTREMITY
  26. OXYCODONE [Concomitant]
     Indication: SWELLING
  27. OXYCODONE [Concomitant]
     Indication: LOCAL SWELLING
  28. PERCOCET [Concomitant]
     Indication: PRODUCT USED FOR UNKNOWN INDICATION

REACTIONS (7)
  - Pulmonary thrombosis [Unknown]
  - Gastrointestinal infection [Unknown]
  - Pain [Unknown]
  - Chills [Unknown]
  - Blood potassium decreased [Unknown]
  - Injection site erythema [Recovered/Resolved]
  - Pyrexia [Not Recovered/Not Resolved]
